FAERS Safety Report 16009925 (Version 1)
Quarter: 2019Q1

REPORT INFORMATION
  Report Type: Spontaneous
  Country: FR (occurrence: FR)
  Receive Date: 20190225
  Receipt Date: 20190225
  Transmission Date: 20190418
  Serious: Yes (Hospitalization, Other)
  Sender: FDA-Public Use
  Company Number: FR-SUN PHARMACEUTICAL INDUSTRIES LTD-2019RR-199952

PATIENT
  Age: 66 Year
  Sex: Female

DRUGS (8)
  1. COLCHIMAX, COMPRIME PELLICULE [Suspect]
     Active Substance: COLCHICINE\OPIUM\TIEMONIUM METHYLSULFATE
     Indication: GOUT
     Dosage: 1 DOSAGE FORM, DAILY
     Route: 048
     Dates: start: 201801, end: 201801
  2. VICTOZA [Concomitant]
     Active Substance: LIRAGLUTIDE
     Indication: TYPE 2 DIABETES MELLITUS
     Dosage: ()
     Route: 065
  3. INEXIUM [Concomitant]
     Active Substance: ESOMEPRAZOLE
     Indication: GASTROOESOPHAGEAL REFLUX DISEASE
     Dosage: ()
     Route: 065
  4. LEVOTHYROX 125 MICROGRAMMES, COMPRIME SECABLE [Concomitant]
     Active Substance: LEVOTHYROXINE SODIUM
     Indication: HYPOTHYROIDISM
     Dosage: ()
     Route: 065
  5. ALLOPURINOL. [Suspect]
     Active Substance: ALLOPURINOL
     Indication: GOUT
     Dosage: ()
     Route: 065
     Dates: start: 201801, end: 201801
  6. METFORMINE [Concomitant]
     Active Substance: METFORMIN HYDROCHLORIDE
     Indication: TYPE 2 DIABETES MELLITUS
     Dosage: ()
     Route: 065
  7. AMLOR [Concomitant]
     Active Substance: AMLODIPINE BESYLATE
     Indication: HYPERTENSION
     Dosage: ()
     Route: 065
  8. EUPRESSYL [Concomitant]
     Active Substance: URAPIDIL
     Indication: HYPERTENSION
     Dosage: ()
     Route: 065

REACTIONS (3)
  - Drug eruption [Recovered/Resolved]
  - Oropharyngeal pain [Recovered/Resolved]
  - Lip oedema [Recovered/Resolved]

NARRATIVE: CASE EVENT DATE: 201801
